FAERS Safety Report 11394220 (Version 1)
Quarter: 2015Q3

REPORT INFORMATION
  Report Type: Spontaneous
  Country: AU (occurrence: AU)
  Receive Date: 20150819
  Receipt Date: 20150819
  Transmission Date: 20151125
  Serious: Yes (Hospitalization)
  Sender: FDA-Public Use
  Company Number: AU-HOSPIRA-2807307

PATIENT
  Age: 58 Year
  Sex: Male

DRUGS (2)
  1. PHENYTOIN. [Suspect]
     Active Substance: PHENYTOIN
     Indication: MYOTONIA
  2. PHENYTOIN. [Suspect]
     Active Substance: PHENYTOIN
     Indication: MYOTONIA
     Dosage: NOT REPORTED

REACTIONS (4)
  - Gamma-glutamyltransferase increased [Recovered/Resolved]
  - Altered state of consciousness [Recovered/Resolved]
  - Vertigo [Recovered/Resolved]
  - Lethargy [Recovered/Resolved]
